FAERS Safety Report 22534894 (Version 1)
Quarter: 2023Q2

REPORT INFORMATION
  Report Type: Spontaneous
  Country: PT (occurrence: PT)
  Receive Date: 20230608
  Receipt Date: 20230608
  Transmission Date: 20230721
  Serious: Yes (Death, Hospitalization, Other)
  Sender: FDA-Public Use
  Company Number: PT-SNT-000379

PATIENT
  Sex: Male

DRUGS (2)
  1. BUPROPION [Suspect]
     Active Substance: BUPROPION
     Indication: Major depression
     Dosage: 300 MILLIGRAM EXTENDED RELEASE TABLET DAILY VIA NASAL ROUTE.
     Route: 045
  2. BUPROPION [Suspect]
     Active Substance: BUPROPION
     Indication: Major depression
     Dosage: 2100 MILLIGRAM EXTENDED RELEASE TABLET VIA NASAL ROUTE BY CRASHING
     Route: 045

REACTIONS (10)
  - Death [Fatal]
  - Acute myocardial infarction [Unknown]
  - Overdose [Unknown]
  - Drug abuse [Unknown]
  - Off label use [Unknown]
  - Cardio-respiratory arrest [Unknown]
  - Drug dependence [Unknown]
  - Psychomotor hyperactivity [Unknown]
  - Irritability [Unknown]
  - Impulsive behaviour [Unknown]
